FAERS Safety Report 4528883-5 (Version None)
Quarter: 2004Q4

REPORT INFORMATION
  Report Type: 
  Country: None (occurrence: None)
  Receive Date: 20041214
  Receipt Date: 20041123
  Transmission Date: 20050328
  Serious: Yes (Hospitalization)
  Sender: FDA-Public Use
  Company Number: B01200401936

PATIENT
  Age: 78 Year
  Sex: Female

DRUGS (5)
  1. (CLOPIDOGREL) - TABLET - 75 MG [Suspect]
     Indication: ISCHAEMIA
     Dosage: 75 MG QD
     Route: 048
     Dates: start: 20031024, end: 20040525
  2. (CLOPIDOGREL) - TABLET - 75 MG [Suspect]
     Indication: PROPHYLAXIS
     Dosage: 75 MG QD
     Route: 048
     Dates: start: 20031024, end: 20040525
  3. BRISERIN(CLOPAMIDE/ DIHYDROERGOCRISTINE MESILATE/ RESERPINE) [Concomitant]
  4. NOCTAMID (LORMETAZEPAM) [Concomitant]
  5. SIMVASTATIN [Concomitant]

REACTIONS (1)
  - BORDERLINE OVARIAN TUMOUR [None]
